FAERS Safety Report 12636169 (Version 3)
Quarter: 2016Q3

REPORT INFORMATION
  Report Type: Report from Study
  Country: US (occurrence: US)
  Receive Date: 20160809
  Receipt Date: 20160908
  Transmission Date: 20161109
  Serious: Yes (Other)
  Sender: FDA-Public Use
  Company Number: US-CIPLA LTD.-2016US10369

PATIENT

DRUGS (13)
  1. BLINDED ALBUTEROL SULPHATE [Suspect]
     Active Substance: ALBUTEROL SULFATE
     Dosage: UNK, VISIT 3
     Route: 065
     Dates: start: 20160725, end: 20160725
  2. METHACHOLINE. [Suspect]
     Active Substance: METHACHOLINE
     Indication: PULMONARY FUNCTION CHALLENGE TEST
     Dosage: UNK
     Dates: start: 20160725
  3. VENTOLIN [Concomitant]
     Active Substance: ALBUTEROL SULFATE
     Indication: ASTHMA
     Dosage: 180 ?G, LESS THAN 3X WEEKLY
     Dates: start: 20160718
  4. BLINDED ALBUTEROL SULPHATE [Suspect]
     Active Substance: ALBUTEROL SULFATE
     Dosage: UNK, VISIT 2
     Route: 065
     Dates: start: 20160720
  5. PLACEBO [Suspect]
     Active Substance: UNSPECIFIED INGREDIENT
  6. IRON [Concomitant]
     Active Substance: IRON
     Indication: ANAEMIA
     Dosage: 45 MG, QD
     Route: 048
     Dates: start: 2014
  7. LEXAPRO [Concomitant]
     Active Substance: ESCITALOPRAM OXALATE
     Indication: DEPRESSION
     Dosage: 20 MG, QD
     Route: 048
     Dates: start: 2014
  8. ZYRTEC [Concomitant]
     Active Substance: CETIRIZINE HYDROCHLORIDE
     Indication: SEASONAL ALLERGY
     Dosage: 10 MG, PRN
     Route: 048
     Dates: start: 2004
  9. VENTOLIN [Concomitant]
     Active Substance: ALBUTEROL SULFATE
     Indication: BRONCHOSPASM
     Dosage: 270 ?G, ONE TIME DOSE
     Dates: start: 20160725, end: 20160725
  10. ALBUTEROL. [Concomitant]
     Active Substance: ALBUTEROL
     Indication: ASTHMA
     Dosage: 180 MCG, INHALE 1-2 PUFFS INTO THE LUNGS EVERY 4 HOURS
     Dates: start: 201510, end: 20160718
  11. TRI-SPRINTEC [Concomitant]
     Active Substance: ETHINYL ESTRADIOL\NORGESTIMATE
     Indication: CONTRACEPTION
     Dosage: 10 MG, QD
     Route: 048
     Dates: start: 2015
  12. FLONASE [Concomitant]
     Active Substance: FLUTICASONE PROPIONATE
     Indication: SEASONAL ALLERGY
     Dosage: USE 2 SPRAYS IN EACH NOSTRIL, QD
     Dates: start: 20160519
  13. SINGULAIR [Concomitant]
     Active Substance: MONTELUKAST SODIUM
     Indication: SEASONAL ALLERGY
     Dosage: 10 MG, QD
     Route: 048
     Dates: start: 20160519, end: 20160705

REACTIONS (2)
  - Pituitary tumour [Recovered/Resolved]
  - Bronchospasm [Recovered/Resolved]

NARRATIVE: CASE EVENT DATE: 20160725
